FAERS Safety Report 17484340 (Version 1)
Quarter: 2020Q1

REPORT INFORMATION
  Report Type: Spontaneous
  Country: US (occurrence: US)
  Receive Date: 20200302
  Receipt Date: 20200302
  Transmission Date: 20200409
  Serious: Yes (Hospitalization, Other)
  Sender: FDA-Public Use
  Company Number: US-PFIZER INC-2020090893

PATIENT
  Age: 69 Year
  Sex: Female
  Weight: 37.19 kg

DRUGS (2)
  1. BOSULIF [Suspect]
     Active Substance: BOSUTINIB MONOHYDRATE
     Indication: CHRONIC MYELOID LEUKAEMIA
     Dosage: 400 MG, ONCE DAILY
     Route: 048
  2. TASIGNA [Suspect]
     Active Substance: NILOTINIB
     Dosage: UNK

REACTIONS (5)
  - Clostridium difficile infection [Unknown]
  - Dyspepsia [Unknown]
  - Parkinson^s disease [Not Recovered/Not Resolved]
  - Dyspnoea [Unknown]
  - Aphonia [Unknown]
